FAERS Safety Report 13764398 (Version 4)
Quarter: 2017Q3

REPORT INFORMATION
  Report Type: Spontaneous
  Country: US (occurrence: US)
  Receive Date: 20170718
  Receipt Date: 20170725
  Transmission Date: 20171127
  Serious: Yes (Other)
  Sender: FDA-Public Use
  Company Number: US-GE HEALTHCARE LIFE SCIENCES-2017CSU002094

PATIENT
  Age: 67 Year
  Sex: Male

DRUGS (2)
  1. MAGNEVIST [Suspect]
     Active Substance: GADOPENTETATE DIMEGLUMINE
     Indication: OSTEOMYELITIS
     Dosage: UNK UNK, SINGLE
     Route: 042
  2. GADOLINIUM (UNSPECIFIED) [Suspect]
     Active Substance: GADOLINIUM
     Indication: OSTEOMYELITIS
     Dosage: UNK, SINGLE
     Route: 042

REACTIONS (1)
  - Nephrogenic systemic fibrosis [Unknown]
